FAERS Safety Report 26158343 (Version 1)
Quarter: 2025Q4

REPORT INFORMATION
  Report Type: Spontaneous
  Country: US (occurrence: US)
  Receive Date: 20251215
  Receipt Date: 20251215
  Transmission Date: 20260119
  Serious: Yes (Life-Threatening, Hospitalization, Other)
  Sender: MEITHEAL PHARMACEUTICALS
  Company Number: US-MEITHEAL-2025MPLIT00479

PATIENT
  Age: 17 Year
  Sex: Male

DRUGS (8)
  1. IDARUBICIN [Suspect]
     Active Substance: IDARUBICIN
     Indication: Acute myeloid leukaemia
     Dosage: ON DAYS 4-6
     Route: 065
  2. IDARUBICIN [Suspect]
     Active Substance: IDARUBICIN
     Dosage: CYCLE 2
     Route: 065
  3. CYTARABINE [Suspect]
     Active Substance: CYTARABINE
     Indication: Acute myeloid leukaemia
     Dosage: ON DAYS 2-6
     Route: 065
  4. FLUDARABINE [Suspect]
     Active Substance: FLUDARABINE PHOSPHATE
     Indication: Acute myeloid leukaemia
     Dosage: ON DAYS 2-6
     Route: 065
  5. GRANULOCYTE COLONY-STIMULATING FACTOR NOS [Suspect]
     Active Substance: GRANULOCYTE COLONY-STIMULATING FACTOR NOS
     Indication: Acute myeloid leukaemia
     Route: 065
  6. VENETOCLAX [Suspect]
     Active Substance: VENETOCLAX
     Indication: Acute myeloid leukaemia
     Dosage: ON DAY 1,
     Route: 065
  7. VENETOCLAX [Suspect]
     Active Substance: VENETOCLAX
     Dosage: ON DAY 2
     Route: 065
  8. VENETOCLAX [Suspect]
     Active Substance: VENETOCLAX
     Dosage: ON DAYS 3 TO 7
     Route: 065

REACTIONS (4)
  - Thrombocytopenia [Recovered/Resolved]
  - Neutropenia [Recovered/Resolved]
  - Anaemia [Recovered/Resolved]
  - Product use issue [Unknown]
